FAERS Safety Report 9012853 (Version 2)
Quarter: 2013Q1

REPORT INFORMATION
  Report Type: Report from Study
  Country: CH (occurrence: CH)
  Receive Date: 20130114
  Receipt Date: 20130122
  Transmission Date: 20140127
  Serious: Yes (Life-Threatening, Other)
  Sender: FDA-Public Use
  Company Number: CH-ABBOTT-12P-151-1026539-00

PATIENT
  Age: 85 Year
  Sex: Male

DRUGS (11)
  1. SEVOFLURANE [Suspect]
     Indication: ANAESTHESIA
     Dates: start: 20061201, end: 20061201
  2. SEVOFLURANE [Suspect]
     Indication: VASCULAR GRAFT
  3. ETOMIDATE [Concomitant]
     Indication: INDUCTION OF ANAESTHESIA
  4. RAMIPRIL [Concomitant]
     Indication: PRODUCT USED FOR UNKNOWN INDICATION
  5. HYDROCHLOROTHIAZID [Concomitant]
     Indication: PRODUCT USED FOR UNKNOWN INDICATION
  6. TORASEMID [Concomitant]
     Indication: PRODUCT USED FOR UNKNOWN INDICATION
  7. METFORMIN [Concomitant]
     Indication: PRODUCT USED FOR UNKNOWN INDICATION
  8. INSULIN [Concomitant]
  9. TRAMADOL [Concomitant]
     Indication: PRODUCT USED FOR UNKNOWN INDICATION
  10. OPIOIDS [Concomitant]
     Indication: ANAESTHESIA
     Dates: start: 20061201, end: 20061201
  11. OPIOIDS [Concomitant]
     Indication: VASCULAR GRAFT

REACTIONS (1)
  - Cardiac failure congestive [Unknown]
